FAERS Safety Report 6594418-9 (Version None)
Quarter: 2010Q1

REPORT INFORMATION
  Report Type: 
  Country: None (occurrence: None)
  Receive Date: 20100222
  Receipt Date: 20100216
  Transmission Date: 20100710
  Serious: Yes (Other)
  Sender: FDA-Public Use
  Company Number: B0634401A

PATIENT
  Sex: Male

DRUGS (4)
  1. RELENZA [Suspect]
     Indication: INFLUENZA
     Dosage: 10MG TWICE PER DAY
     Route: 055
     Dates: start: 20100120, end: 20100121
  2. ASVERIN [Concomitant]
     Route: 048
  3. NIPOLAZIN [Concomitant]
     Route: 048
  4. MUCOSOLVAN [Concomitant]
     Route: 048

REACTIONS (1)
  - HALLUCINATION [None]
